FAERS Safety Report 9721395 (Version 1)
Quarter: 2013Q4

REPORT INFORMATION
  Report Type: Spontaneous
  Country: US (occurrence: US)
  Receive Date: 20131129
  Receipt Date: 20131129
  Transmission Date: 20140711
  Serious: No
  Sender: FDA-Public Use
  Company Number: US-B.I. PHARMACEUTICALS,INC./RIDGEFIELD-2013-BI-38185BP

PATIENT
  Age: 33 Year
  Sex: Male

DRUGS (7)
  1. SPIRIVA [Suspect]
     Indication: SLEEP APNOEA SYNDROME
     Dosage: 18 MCG
     Route: 055
     Dates: start: 201311
  2. HUMALOG [Concomitant]
     Indication: DIABETES MELLITUS
     Dosage: (SUBCUTANEOUS)
     Route: 058
  3. KLONOPIN [Concomitant]
     Indication: DEPRESSION
     Route: 048
  4. LANTUS [Concomitant]
     Indication: DIABETES MELLITUS
     Dosage: 45 U
     Route: 058
  5. LEXAPRO [Concomitant]
     Indication: DEPRESSION
     Route: 048
  6. ALOPRAZOLAM [Concomitant]
     Indication: DEPRESSION
     Dosage: 3 MG
     Route: 048
  7. ABILIFY [Concomitant]
     Indication: DEPRESSION
     Route: 048

REACTIONS (3)
  - Oropharyngeal plaque [Not Recovered/Not Resolved]
  - Oral disorder [Not Recovered/Not Resolved]
  - Off label use [Not Recovered/Not Resolved]
